FAERS Safety Report 6221984-5 (Version None)
Quarter: 2009Q2

REPORT INFORMATION
  Report Type: 
  Country: None (occurrence: None)
  Receive Date: 20090608
  Receipt Date: 20090608
  Transmission Date: 20091009
  Serious: Yes (Other)
  Sender: FDA-Public Use
  Company Number: None

PATIENT
  Sex: Female
  Weight: 65.7716 kg

DRUGS (1)
  1. COZAAR [Suspect]
     Indication: HYPERTENSION
     Dosage: 100 MG ONCE DAILY PO
     Route: 048
     Dates: start: 20090518, end: 20090604

REACTIONS (2)
  - INSOMNIA [None]
  - MUSCLE SPASMS [None]
